FAERS Safety Report 4504410-3 (Version None)
Quarter: 2004Q4

REPORT INFORMATION
  Report Type: 
  Country: None (occurrence: None)
  Receive Date: 20041117
  Receipt Date: 20041117
  Transmission Date: 20050328
  Serious: Yes (Hospitalization)
  Sender: FDA-Public Use
  Company Number: None

PATIENT
  Age: 85 Year
  Sex: Male

DRUGS (3)
  1. POTASSIUM CHLORIDE [Suspect]
     Indication: MINERAL SUPPLEMENTATION
     Dosage: 16 MEQ BID
     Dates: start: 20040731
  2. FUROSEMIDE [Concomitant]
  3. LORATADINE [Concomitant]

REACTIONS (1)
  - HYPERKALAEMIA [None]
